FAERS Safety Report 9416837 (Version 1)
Quarter: 2013Q3

REPORT INFORMATION
  Report Type: Spontaneous
  Country: US (occurrence: US)
  Receive Date: 20130724
  Receipt Date: 20130724
  Transmission Date: 20140515
  Serious: No
  Sender: FDA-Public Use
  Company Number: US-PFIZER INC-2013213282

PATIENT
  Age: 92 Year
  Sex: Male

DRUGS (1)
  1. CELEBREX [Suspect]
     Indication: BACK PAIN
     Dosage: UNK
     Dates: start: 20130719

REACTIONS (1)
  - Pruritus [Unknown]
